FAERS Safety Report 6672010-5 (Version None)
Quarter: 2010Q2

REPORT INFORMATION
  Report Type: 
  Country: None (occurrence: None)
  Receive Date: 20100407
  Receipt Date: 20100326
  Transmission Date: 20101027
  Serious: Yes (Hospitalization)
  Sender: FDA-Public Use
  Company Number: GB-MERCK-1003GBR00147

PATIENT
  Age: 80 Year
  Sex: Female

DRUGS (4)
  1. PRINIVIL [Suspect]
     Indication: HYPERTENSION
     Route: 048
     Dates: start: 20020718, end: 20100315
  2. BENDROFLUMETHIAZIDE [Suspect]
     Indication: HYPERTENSION
     Route: 048
     Dates: start: 19991108, end: 20100315
  3. ACETAMINOPHEN AND CODEINE PHOSPHATE [Concomitant]
     Indication: PAIN
     Route: 048
  4. VISCOTEARS [Concomitant]
     Indication: DRY EYE
     Route: 061
     Dates: start: 20100305

REACTIONS (4)
  - DIARRHOEA [None]
  - HYPOPHAGIA [None]
  - RENAL FAILURE ACUTE [None]
  - VOMITING [None]
